FAERS Safety Report 6169223-8 (Version None)
Quarter: 2009Q2

REPORT INFORMATION
  Report Type: 
  Country: None (occurrence: None)
  Receive Date: 20090424
  Receipt Date: 20090410
  Transmission Date: 20091009
  Serious: Yes (Disabling)
  Sender: FDA-Public Use
  Company Number: APP200900204

PATIENT
  Age: 36 Year
  Sex: Female

DRUGS (9)
  1. XYLOCAINE W/ EPINEPHRENE [Suspect]
     Indication: MUSCULOSKELETAL PAIN
     Dosage: 270 ML, CONTINUOUS VIA PUMP, INTRA-ARTICULAR
     Route: 014
     Dates: start: 20020930
  2. MARCAINE [Suspect]
     Indication: NERVE BLOCK
     Dosage: 5 ML, INTERSCALENE  BLOCK
     Dates: start: 20020930
  3. MEPIVACAINE HCL [Suspect]
     Indication: NERVE BLOCK
     Dosage: 30 ML
     Dates: start: 20020930
  4. MARCAINE HYDROCHLORIDE W/ EPINEPHRINE [Suspect]
     Indication: DRUG USE FOR UNKNOWN INDICATION
     Dosage: 50 ML 60 ML, INTRA-ARTICULAR
     Route: 014
     Dates: start: 20020930
  5. MARCAINE HYDROCHLORIDE W/ EPINEPHRINE [Suspect]
     Indication: DRUG USE FOR UNKNOWN INDICATION
     Dosage: 50 ML 60 ML, INTRA-ARTICULAR
     Route: 014
     Dates: start: 20050913
  6. ON-Q PAIN PUMP [Suspect]
     Indication: MUSCULOSKELETAL PAIN
     Dates: start: 20020930
  7. SONSORCAINE-MPF WITH EPINEPHRINE (BUPIVACAINE HYDROCHLORIDE) [Suspect]
     Indication: DRUG USE FOR UNKNOWN INDICATION
     Dosage: CONTINUOUS VIA PUMP, INTRA-ARTICULAR 10 ML
     Route: 014
     Dates: start: 20050913
  8. SONSORCAINE-MPF WITH EPINEPHRINE (BUPIVACAINE HYDROCHLORIDE) [Suspect]
     Indication: MUSCULOSKELETAL PAIN
     Dosage: CONTINUOUS VIA PUMP, INTRA-ARTICULAR 10 ML
     Route: 014
     Dates: start: 20050913
  9. BREG PAINCARE 2000 PAIN PUMP [Suspect]
     Indication: MUSCULOSKELETAL PAIN
     Dates: start: 20050913

REACTIONS (7)
  - CHONDROLYSIS [None]
  - FALL [None]
  - MUSCULOSKELETAL DISCOMFORT [None]
  - MUSCULOSKELETAL PAIN [None]
  - OSTEOARTHRITIS [None]
  - PERIARTHRITIS [None]
  - ROTATOR CUFF SYNDROME [None]
